FAERS Safety Report 5044127-2 (Version None)
Quarter: 2006Q2

REPORT INFORMATION
  Report Type: 
  Country: None (occurrence: None)
  Receive Date: 20060601
  Receipt Date: 20060121
  Transmission Date: 20061013
  Serious: No
  Sender: FDA-Public Use
  Company Number: 2006PV007440

PATIENT
  Sex: Male

DRUGS (9)
  1. BYETTA [Suspect]
     Indication: DRUG USE FOR UNKNOWN INDICATION
     Dates: start: 20051026
  2. NORVASC [Concomitant]
  3. CARDIZEM LA [Concomitant]
  4. ANTARA [Concomitant]
  5. AVANDAMET [Concomitant]
  6. DIMAN [Concomitant]
  7. COREG [Concomitant]
  8. SYNTHROID [Concomitant]
  9. ADUDCOR [Concomitant]

REACTIONS (2)
  - SWELLING FACE [None]
  - SWOLLEN TONGUE [None]
